FAERS Safety Report 6651744-2 (Version None)
Quarter: 2010Q1

REPORT INFORMATION
  Report Type: 
  Country: None (occurrence: None)
  Receive Date: 20100325
  Receipt Date: 20100315
  Transmission Date: 20100710
  Serious: Yes (Other)
  Sender: FDA-Public Use
  Company Number: US-WYE-H14122410

PATIENT
  Sex: Male

DRUGS (17)
  1. PROTONIX [Suspect]
     Dosage: UNKNOWN
     Dates: start: 20090801, end: 20100101
  2. TOPROL-XL [Concomitant]
     Dosage: UNKNOWN
  3. ASPIRIN [Concomitant]
     Dosage: UNKNOWN
  4. VYTORIN [Concomitant]
     Dosage: UNKNOWN
  5. AVODART [Concomitant]
     Dosage: UNKNOWN
  6. FLOMAX [Concomitant]
     Dosage: UNKNOWN
  7. IMDUR [Concomitant]
     Dosage: UNKNOWN
  8. LISINOPRIL [Concomitant]
     Dosage: UNKNOWN
  9. LASIX [Concomitant]
     Dosage: UNKNOWN
  10. MOBIC [Concomitant]
     Dosage: UNKNOWN
  11. POTASSIUM CHLORIDE [Concomitant]
     Dosage: UNKNOWN
  12. AMIODARONE HCL [Concomitant]
     Dosage: UNKNOWN
  13. METFORMIN HCL [Concomitant]
     Dosage: UNKNOWN
  14. LYRICA [Concomitant]
     Dosage: UNKNOWN
  15. HYDROCODONE [Concomitant]
     Dosage: UNKNOWN
  16. OMEPRAZOLE [Concomitant]
     Dosage: UNKNOWN
  17. PLAVIX [Interacting]
     Indication: MYOCARDIAL INFARCTION
     Route: 048
     Dates: start: 20060101

REACTIONS (4)
  - ATRIAL FIBRILLATION [None]
  - DRUG INTERACTION [None]
  - MYOCARDIAL INFARCTION [None]
  - TACHYCARDIA [None]
